FAERS Safety Report 8404747-1 (Version None)
Quarter: 2012Q2

REPORT INFORMATION
  Report Type: 
  Country: None (occurrence: None)
  Receive Date: 20120601
  Receipt Date: 20120522
  Transmission Date: 20120825
  Serious: Yes (Death)
  Sender: FDA-Public Use
  Company Number: SG-BAXTER-2012BAX006121

PATIENT
  Sex: Female

DRUGS (2)
  1. EXTRANEAL [Suspect]
     Indication: PERITONEAL DIALYSIS
     Route: 033
  2. DIANEAL LOW CALCIUM (2.5 MEQ L) PERITONEAL DIALYSIS SOLUTION WITH 1.5% [Suspect]
     Indication: PERITONEAL DIALYSIS
     Route: 033

REACTIONS (2)
  - INFECTIOUS PERITONITIS [None]
  - DEATH [None]
